FAERS Safety Report 6491157-X (Version None)
Quarter: 2009Q4

REPORT INFORMATION
  Report Type: 
  Country: None (occurrence: None)
  Receive Date: 20091211
  Receipt Date: 20091208
  Transmission Date: 20100525
  Serious: Yes (Death)
  Sender: FDA-Public Use
  Company Number: BR-NOVOPROD-301898

PATIENT
  Sex: Female

DRUGS (1)
  1. NOVORAPID PENFILL [Suspect]
     Indication: DIABETES MELLITUS
     Dosage: UNK

REACTIONS (2)
  - AORTIC STENOSIS [None]
  - PULMONARY OEDEMA [None]
